FAERS Safety Report 10207680 (Version 1)
Quarter: 2014Q2

REPORT INFORMATION
  Report Type: Spontaneous
  Country: US (occurrence: US)
  Receive Date: 20140530
  Receipt Date: 20140530
  Transmission Date: 20141212
  Serious: No
  Sender: FDA-Public Use
  Company Number: US-GLAXOSMITHKLINE-A1054511A

PATIENT
  Sex: Male

DRUGS (11)
  1. VENTOLIN [Suspect]
     Indication: LUNG DISORDER
     Dosage: 1PUFF FOUR TIMES PER DAY
     Route: 055
     Dates: start: 201311
  2. OXYGEN [Concomitant]
  3. ASPIRIN [Concomitant]
  4. LISINOPRIL [Concomitant]
  5. METOPROLOL [Concomitant]
  6. HYDROCHLOROTHIAZIDE [Concomitant]
  7. CALCIUM [Concomitant]
  8. VITAMIN C [Concomitant]
  9. FOLIC ACID [Concomitant]
  10. VITAMIN B COMPLEX [Concomitant]
  11. MULTIVITAMIN [Concomitant]

REACTIONS (1)
  - Nervousness [Unknown]
